FAERS Safety Report 8595750-X (Version None)
Quarter: 2012Q3

REPORT INFORMATION
  Report Type: 
  Country: None (occurrence: None)
  Receive Date: 20120815
  Receipt Date: 20120802
  Transmission Date: 20120928
  Serious: Yes (Disabling)
  Sender: FDA-Public Use
  Company Number: US-ELI_LILLY_AND_COMPANY-US201208001308

PATIENT
  Age: 67 Year
  Sex: Female

DRUGS (5)
  1. LANTUS [Concomitant]
  2. HUMALOG [Suspect]
     Dosage: UNK, PRN
     Dates: start: 20120618
  3. GLIMEPIRIDE [Concomitant]
  4. HUMALOG [Suspect]
     Indication: DIABETES MELLITUS
     Dosage: UNK UNK, PRN
     Dates: start: 20050101, end: 20110701
  5. METFORMIN HYDROCHLORIDE [Concomitant]

REACTIONS (4)
  - LACRIMATION INCREASED [None]
  - BLOOD GLUCOSE INCREASED [None]
  - DRUG DOSE OMISSION [None]
  - BLINDNESS [None]
